FAERS Safety Report 7564486-6 (Version None)
Quarter: 2011Q2

REPORT INFORMATION
  Report Type: 
  Country: None (occurrence: None)
  Receive Date: 20110622
  Receipt Date: 20110617
  Transmission Date: 20111010
  Serious: Yes (Death, Hospitalization, Other)
  Sender: FDA-Public Use
  Company Number: PHHY2011US23805

PATIENT
  Sex: Female
  Weight: 67.302 kg

DRUGS (16)
  1. ZOLOFT [Concomitant]
  2. CIPROFLOXACIN HCL [Concomitant]
     Indication: URINARY TRACT INFECTION
     Dosage: 500 MG, BID
  3. LISINOPRIL [Concomitant]
     Dosage: 2 DF, DAILY
     Route: 048
  4. ALPRAZOLAM [Concomitant]
  5. COREG [Concomitant]
  6. LASIX [Concomitant]
     Dosage: 1 DF, DAILY
     Route: 048
  7. ASPIRIN [Concomitant]
     Dosage: 1 DF, DAILY
     Route: 048
  8. METHADONE HCL [Concomitant]
  9. ADVAIR DISKUS 100/50 [Concomitant]
  10. ACETAMINOPHEN AND HYDROCODONE BITARTRATE [Concomitant]
     Dosage: 5 ML, PRN
     Route: 048
  11. OXYGEN [Concomitant]
     Dosage: 2 L/MIN, UNK
  12. COMBIVENT [Concomitant]
  13. FEMARA [Suspect]
     Dosage: 2.5 MG, QD
     Route: 048
  14. SIMVASTATIN [Concomitant]
     Dosage: 1 DF, DAILY
     Route: 048
  15. SPIRIVA [Concomitant]
     Dosage: 18 UG, DAILY
  16. RECLAST [Concomitant]
     Dosage: 5 MG, UNK

REACTIONS (23)
  - SPINAL COLUMN STENOSIS [None]
  - ABDOMINAL PAIN [None]
  - CONSTIPATION [None]
  - PRURITUS [None]
  - SLEEP DISORDER [None]
  - BACK PAIN [None]
  - DEAFNESS [None]
  - DYSPNOEA [None]
  - FALL [None]
  - BREATH SOUNDS ABNORMAL [None]
  - OEDEMA PERIPHERAL [None]
  - DECREASED APPETITE [None]
  - BONE PAIN [None]
  - BLOOD PRESSURE INCREASED [None]
  - DEPRESSION [None]
  - VISUAL IMPAIRMENT [None]
  - BREAST TENDERNESS [None]
  - DEATH [None]
  - NOCTURIA [None]
  - WEIGHT DECREASED [None]
  - ANXIETY [None]
  - DIZZINESS [None]
  - FATIGUE [None]
